FAERS Safety Report 14069864 (Version 3)
Quarter: 2017Q4

REPORT INFORMATION
  Report Type: Report from Study
  Country: LB (occurrence: LB)
  Receive Date: 20171010
  Receipt Date: 20171208
  Transmission Date: 20180321
  Serious: Yes (Hospitalization)
  Sender: FDA-Public Use
  Company Number: PHHY2016LB122446

PATIENT
  Age: 78 Year
  Sex: Female

DRUGS (4)
  1. ENTRESTO [Suspect]
     Active Substance: SACUBITRIL\VALSARTAN
     Dosage: 0.5 DF, QD
     Route: 048
     Dates: start: 201711
  2. ENTRESTO [Suspect]
     Active Substance: SACUBITRIL\VALSARTAN
     Dosage: 200 MG, BID
     Route: 048
     Dates: start: 20170925, end: 20171030
  3. ENTRESTO [Suspect]
     Active Substance: SACUBITRIL\VALSARTAN
     Indication: PRODUCT USED FOR UNKNOWN INDICATION
     Dosage: 50 MG, BID
     Route: 048
     Dates: start: 20160806, end: 20160902
  4. ENTRESTO [Suspect]
     Active Substance: SACUBITRIL\VALSARTAN
     Dosage: 100 MG, BID
     Route: 048
     Dates: start: 20160903, end: 20170925

REACTIONS (8)
  - Pyrexia [Unknown]
  - Diarrhoea [Unknown]
  - Hypotension [Recovering/Resolving]
  - Hypertension [Recovering/Resolving]
  - Blood pressure increased [Unknown]
  - Wrong technique in product usage process [Recovering/Resolving]
  - Blood pressure fluctuation [Recovering/Resolving]
  - Inappropriate schedule of drug administration [Recovering/Resolving]

NARRATIVE: CASE EVENT DATE: 20160902
